FAERS Safety Report 16438189 (Version 9)
Quarter: 2020Q2

REPORT INFORMATION
  Report Type: Report from Study
  Country: DE (occurrence: DE)
  Receive Date: 20190617
  Receipt Date: 20200407
  Transmission Date: 20200713
  Serious: Yes (Death, Life-Threatening, Hospitalization, Disabling, Other)
  Sender: FDA-Public Use
  Company Number: DE-BRISTOL-MYERS SQUIBB COMPANY-BMS-2019-006182

PATIENT
  Age: 77 Year
  Sex: Female

DRUGS (1)
  1. NIVOLUMAB [Suspect]
     Active Substance: NIVOLUMAB
     Indication: MALIGNANT MELANOMA
     Dosage: 192 MILLIGRAM, Q2WK
     Route: 042
     Dates: start: 20181106, end: 20190607

REACTIONS (11)
  - Hemiparesis [Unknown]
  - Tachyarrhythmia [Unknown]
  - Pericardial haemorrhage [Unknown]
  - Myalgia [Recovering/Resolving]
  - Aortic dissection [Unknown]
  - Autoimmune hypothyroidism [Not Recovered/Not Resolved]
  - Cardiac arrest [Unknown]
  - Haemorrhage [Unknown]
  - General physical health deterioration [Fatal]
  - Haemothorax [Unknown]
  - Cerebellar infarction [Unknown]

NARRATIVE: CASE EVENT DATE: 20190108
